FAERS Safety Report 24930470 (Version 1)
Quarter: 2025Q1

REPORT INFORMATION
  Report Type: Spontaneous
  Country: US (occurrence: US)
  Receive Date: 20250205
  Receipt Date: 20250205
  Transmission Date: 20250408
  Serious: Yes (Hospitalization)
  Sender: OXFORD PHARMACEUTICALS, LLC
  Company Number: US-Oxford Pharmaceuticals, LLC-2170333

PATIENT
  Age: 22 Year
  Sex: Male

DRUGS (8)
  1. LORAZEPAM [Suspect]
     Active Substance: LORAZEPAM
     Indication: Catatonia
  2. NADOLOL [Concomitant]
     Active Substance: NADOLOL
  3. THIAMINE [Concomitant]
     Active Substance: THIAMINE
  4. VITAMINS [Concomitant]
     Active Substance: VITAMINS
  5. FOLIC ACID [Concomitant]
     Active Substance: FOLIC ACID
  6. ZIPRASIDONE [Concomitant]
     Active Substance: ZIPRASIDONE
  7. LACTULOSE [Concomitant]
     Active Substance: LACTULOSE
  8. RIFAXIMIN [Concomitant]
     Active Substance: RIFAXIMIN

REACTIONS (1)
  - Drug ineffective for unapproved indication [Unknown]
